FAERS Safety Report 19574928 (Version 2)
Quarter: 2022Q1

REPORT INFORMATION
  Report Type: Spontaneous
  Country: US (occurrence: None)
  Receive Date: 20210719
  Receipt Date: 20220209
  Transmission Date: 20220423
  Serious: No
  Sender: FDA-Public Use
  Company Number: US-MERCK HEALTHCARE KGAA-9249918

PATIENT
  Sex: Male

DRUGS (3)
  1. METFORMIN [Suspect]
     Active Substance: METFORMIN HYDROCHLORIDE
     Indication: Product used for unknown indication
  2. TUKYSA [Suspect]
     Active Substance: TUCATINIB
     Indication: Salivary gland cancer
  3. CAPECITABINE [Concomitant]
     Active Substance: CAPECITABINE
     Indication: Product used for unknown indication

REACTIONS (1)
  - Diarrhoea [Recovered/Resolved]
